FAERS Safety Report 6223946-0 (Version None)
Quarter: 2009Q2

REPORT INFORMATION
  Report Type: 
  Country: None (occurrence: None)
  Receive Date: 20090612
  Receipt Date: 20090305
  Transmission Date: 20091009
  Serious: No
  Sender: FDA-Public Use
  Company Number: US-ABBOTT-09P-163-0560987-00

PATIENT
  Sex: Female
  Weight: 98.972 kg

DRUGS (9)
  1. HUMIRA [Suspect]
     Indication: ARTHRITIS
     Route: 058
     Dates: start: 20050101, end: 20090201
  2. FEXONABINE [Concomitant]
     Indication: HYPERSENSITIVITY
  3. METOPROLOL SUCCINATE [Concomitant]
     Indication: HYPERTENSION
  4. ASPIRIN [Concomitant]
     Indication: CARDIAC MURMUR
  5. LOVASTATIN [Concomitant]
     Indication: BLOOD CHOLESTEROL INCREASED
  6. FOLIC ACID [Concomitant]
     Indication: ARTHRITIS
  7. METHOTREXATE [Concomitant]
     Indication: ARTHRITIS
  8. ESTRADIOL [Concomitant]
     Indication: HORMONE REPLACEMENT THERAPY
  9. NEXIUM [Concomitant]
     Indication: GASTROOESOPHAGEAL REFLUX DISEASE

REACTIONS (2)
  - MUSCLE SPASMS [None]
  - PAIN [None]
